FAERS Safety Report 5234490-1 (Version None)
Quarter: 2007Q1

REPORT INFORMATION
  Report Type: 
  Country: None (occurrence: None)
  Receive Date: 20070208
  Receipt Date: 20070208
  Transmission Date: 20070707
  Serious: Yes (Other)
  Sender: FDA-Public Use
  Company Number: None

PATIENT
  Age: 80 Year
  Sex: Female
  Weight: 74.4 kg

DRUGS (1)
  1. MEPERIDINE HCL [Suspect]
     Indication: PAIN
     Dates: start: 20060719, end: 20060801

REACTIONS (16)
  - ANXIETY [None]
  - BLOOD PRESSURE SYSTOLIC INCREASED [None]
  - CULTURE WOUND POSITIVE [None]
  - DYSPEPSIA [None]
  - DYSPNOEA [None]
  - ENTEROBACTER INFECTION [None]
  - HEART RATE INCREASED [None]
  - HYPOTENSION [None]
  - MYOCARDIAL INFARCTION [None]
  - NAUSEA [None]
  - NERVOUSNESS [None]
  - PNEUMONIA [None]
  - POSTOPERATIVE ILEUS [None]
  - RESTLESSNESS [None]
  - SEPSIS [None]
  - STAPHYLOCOCCAL INFECTION [None]
